FAERS Safety Report 23326646 (Version 15)
Quarter: 2025Q2

REPORT INFORMATION
  Report Type: Spontaneous
  Country: US (occurrence: US)
  Receive Date: 20231221
  Receipt Date: 20250603
  Transmission Date: 20250716
  Serious: No
  Sender: PFIZER
  Company Number: US-PFIZER INC-PV202300201138

PATIENT
  Age: 74 Year
  Sex: Female
  Weight: 79.365 kg

DRUGS (20)
  1. TIKOSYN [Suspect]
     Active Substance: DOFETILIDE
     Indication: Atrial fibrillation
     Dates: start: 202307
  2. TIKOSYN [Suspect]
     Active Substance: DOFETILIDE
     Indication: Atrial flutter
     Dosage: 1 CAPSULE (250 MCG TOTAL) IN THE MORNING AND 1 CAPSULE (250 MCG TOTAL) BEFORE BEDTIME
     Route: 048
     Dates: start: 202311
  3. TIKOSYN [Suspect]
     Active Substance: DOFETILIDE
     Route: 048
  4. ELIQUIS [Concomitant]
     Active Substance: APIXABAN
     Indication: Atrial fibrillation
     Dosage: 5 MG, 2X/DAY (HAS BEEN TAKING LONGER THAN TIKOSYN, FOR 3 YEARS)
     Route: 048
     Dates: start: 2021
  5. CALCITRIOL [Concomitant]
     Active Substance: CALCITRIOL
     Indication: Mineral supplementation
     Dosage: 4 CAP BY MOUTH DAILY AT 6 PM (AROUND EVENING)
     Route: 048
     Dates: start: 2023
  6. LEVOTHYROXINE [Concomitant]
     Active Substance: LEVOTHYROXINE
     Indication: Thyroid disorder
     Dosage: 1 TAB BY MOUTH DAILY BEFORE BREAKFAST (AROUND MORNING)
     Route: 048
     Dates: start: 1990
  7. FUROSEMIDE [Concomitant]
     Active Substance: FUROSEMIDE
     Indication: Pericardial effusion
     Dosage: 40 MG EVERY OTHER DAY
  8. FUROSEMIDE [Concomitant]
     Active Substance: FUROSEMIDE
     Indication: Peripheral swelling
  9. CALCIUM [Concomitant]
     Active Substance: CALCIUM
     Dosage: 500 MG, 1X/DAY
  10. IRON [Concomitant]
     Active Substance: IRON
     Dosage: 325 MG, WEEKLY
  11. TRAMADOL [Concomitant]
     Active Substance: TRAMADOL
     Indication: Back pain
  12. TRAMADOL [Concomitant]
     Active Substance: TRAMADOL
     Dosage: 1 TAB BY MOUTH TWO TIMES A DAY AS NEEDED (AROUND BEDTIME AND AS NEEDED)
     Route: 048
  13. ENTRESTO [Concomitant]
     Active Substance: SACUBITRIL\VALSARTAN
     Indication: Atrial fibrillation
     Dosage: 1 TAB BY MOUTH TWO TIMES A DAY (AROUND MORNING AND BEDTIME)
     Route: 048
  14. MAGNESIUM OXIDE [Concomitant]
     Active Substance: MAGNESIUM OXIDE
     Dosage: 25 MG, 1X/DAY
  15. HERBALS\TURMERIC [Concomitant]
     Active Substance: HERBALS\TURMERIC
     Indication: Arthritis
     Dosage: 400 MG, 1X/DAY
  16. ACETAMINOPHEN [Concomitant]
     Active Substance: ACETAMINOPHEN
  17. CALCIUM CARBONATE [Concomitant]
     Active Substance: CALCIUM CARBONATE
     Dosage: 500 MG CALCIUM (1250 MG) TABLET, TAKE AROUND MORNING
  18. FERROUS SULFATE [Concomitant]
     Active Substance: FERROUS SULFATE
     Dosage: 325 MG (65 MG IRON) TABLET TAKE AT ONCE A WEEK (AROUND MORNING)
  19. POTASSIUM [Concomitant]
     Active Substance: POTASSIUM
     Dosage: OTC ONCE WEEKLY (AROUND MORNING)
  20. MAGNESIUM OXIDE [Concomitant]
     Active Substance: MAGNESIUM OXIDE
     Dosage: 250 MG MAGNESIUM TABLET (AROUND MORNING)

REACTIONS (2)
  - Visual impairment [Unknown]
  - Off label use [Unknown]

NARRATIVE: CASE EVENT DATE: 20230701
